FAERS Safety Report 8919485 (Version 2)
Quarter: 2013Q1

REPORT INFORMATION
  Report Type: Spontaneous
  Country: CA (occurrence: None)
  Receive Date: 20121114
  Receipt Date: 20130117
  Transmission Date: 20140127
  Serious: Yes (Hospitalization, Other)
  Sender: FDA-Public Use
  Company Number: ADR-2012-02059

PATIENT
  Sex: 0

DRUGS (1)
  1. LIORESAL INTRATHECAL [Suspect]
     Indication: CEREBRAL PALSY

REACTIONS (1)
  - Implant site haematoma [None]
